FAERS Safety Report 6975284-6 (Version None)
Quarter: 2010Q3

REPORT INFORMATION
  Report Type: 
  Country: None (occurrence: None)
  Receive Date: 20100910
  Receipt Date: 20090316
  Transmission Date: 20110219
  Serious: No
  Sender: FDA-Public Use
  Company Number: US-WYE-H08471109

PATIENT
  Sex: Female

DRUGS (3)
  1. PRISTIQ [Suspect]
     Indication: POST-TRAUMATIC STRESS DISORDER
     Route: 048
     Dates: start: 20090228
  2. MORPHINE SULFATE [Concomitant]
  3. VICODIN ES [Concomitant]

REACTIONS (2)
  - HEADACHE [None]
  - NAUSEA [None]
